FAERS Safety Report 20708048 (Version 9)
Quarter: 2022Q3

REPORT INFORMATION
  Report Type: Spontaneous
  Country: US (occurrence: US)
  Receive Date: 20220414
  Receipt Date: 20220810
  Transmission Date: 20221027
  Serious: Yes (Hospitalization, Other)
  Sender: FDA-Public Use
  Company Number: US-GLAXOSMITHKLINE-US2022AMR063839

PATIENT

DRUGS (4)
  1. ZEJULA [Suspect]
     Active Substance: NIRAPARIB
     Indication: Ovarian cancer
     Dosage: 100 MG, QD
     Dates: start: 20220412
  2. ZEJULA [Suspect]
     Active Substance: NIRAPARIB
     Dosage: UNK, 100MG:200MG QD, ALTERNATE DOSAGES
  3. ZEJULA [Suspect]
     Active Substance: NIRAPARIB
     Dosage: UNK,100 MG QD ONE DAY AND BID THE SECOND DAY
  4. ZEJULA [Suspect]
     Active Substance: NIRAPARIB
     Dosage: UNK, 100 MG QD ALTERNATING WITH 200 MG QD
     Dates: end: 20220803

REACTIONS (18)
  - Pleural effusion [Unknown]
  - Chronic kidney disease [Unknown]
  - Liver disorder [Unknown]
  - Insomnia [Recovering/Resolving]
  - Constipation [Recovering/Resolving]
  - Headache [Unknown]
  - Dysgeusia [Recovered/Resolved]
  - Cough [Not Recovered/Not Resolved]
  - Sleep disorder [Not Recovered/Not Resolved]
  - Condition aggravated [Unknown]
  - Nausea [Recovering/Resolving]
  - Feeling hot [Recovered/Resolved]
  - Hot flush [Recovering/Resolving]
  - Hospice care [Unknown]
  - Drug ineffective [Unknown]
  - Off label use [Unknown]
  - Inappropriate schedule of product administration [Unknown]
  - Product dose omission issue [Unknown]
